FAERS Safety Report 8823509 (Version 2)
Quarter: 2013Q1

REPORT INFORMATION
  Report Type: Spontaneous
  Country: US (occurrence: US)
  Receive Date: 20121003
  Receipt Date: 20130104
  Transmission Date: 20140127
  Serious: No
  Sender: FDA-Public Use
  Company Number: US-009507513-1209USA006986

PATIENT
  Age: 17 None
  Sex: Female
  Weight: 68.27 kg

DRUGS (2)
  1. IMPLANON [Suspect]
     Indication: CONTRACEPTION
     Dosage: 1 ROD UP TO 3 YEARS
     Route: 059
     Dates: start: 20110912
  2. IBUPROFEN [Concomitant]
     Indication: PAIN

REACTIONS (2)
  - Amenorrhoea [Unknown]
  - Metrorrhagia [Unknown]
